FAERS Safety Report 8177876-8 (Version None)
Quarter: 2012Q1

REPORT INFORMATION
  Report Type: 
  Country: None (occurrence: None)
  Receive Date: 20120301
  Receipt Date: 20120223
  Transmission Date: 20120608
  Serious: Yes (Death, Other)
  Sender: FDA-Public Use
  Company Number: JP-CELGENEUS-087-50794-12022843

PATIENT
  Sex: Male
  Weight: 68 kg

DRUGS (9)
  1. VIDAZA [Suspect]
     Dosage: 75 MILLIGRAM/SQ. METER
     Route: 058
     Dates: start: 20110627, end: 20110703
  2. FUROSEMIDE [Concomitant]
     Route: 065
  3. DORIPENEM HYDRATE [Concomitant]
     Route: 065
     Dates: start: 20110703, end: 20110719
  4. VORICONAZOLE [Concomitant]
     Route: 065
     Dates: start: 20110712
  5. MICAFUNGIN SODIUM [Concomitant]
     Route: 065
     Dates: start: 20110706, end: 20110712
  6. VANCOMYCIN HYDROCHLORIDE [Concomitant]
     Route: 065
     Dates: start: 20110708, end: 20110719
  7. LANSOPRAZOLE [Concomitant]
     Route: 065
  8. MINOCYCLINE HCL [Concomitant]
     Route: 065
     Dates: start: 20110712
  9. DIGOXIN [Concomitant]
     Route: 065

REACTIONS (3)
  - HAEMOGLOBIN DECREASED [None]
  - PLATELET COUNT DECREASED [None]
  - FEBRILE NEUTROPENIA [None]
